FAERS Safety Report 5876997-X (Version None)
Quarter: 2008Q3

REPORT INFORMATION
  Report Type: 
  Country: None (occurrence: None)
  Receive Date: 20080909
  Receipt Date: 20080909
  Transmission Date: 20090109
  Serious: No
  Sender: FDA-Public Use
  Company Number: None

PATIENT

DRUGS (1)
  1. EFFEXOR XR [Suspect]

REACTIONS (2)
  - DRUG WITHDRAWAL SYNDROME [None]
  - MALAISE [None]
